FAERS Safety Report 16153805 (Version 2)
Quarter: 2019Q2

REPORT INFORMATION
  Report Type: Report from Study
  Country: US (occurrence: US)
  Receive Date: 20190403
  Receipt Date: 20190411
  Transmission Date: 20190711
  Serious: Yes (Hospitalization)
  Sender: FDA-Public Use
  Company Number: PHHO2019US003407

PATIENT
  Age: 87 Year
  Sex: Female
  Weight: 77 kg

DRUGS (9)
  1. BLINDED LCZ696 [Suspect]
     Active Substance: SACUBITRIL\VALSARTAN
     Indication: CARDIAC FAILURE
     Dosage: CODE NOT BROKEN
     Route: 048
     Dates: start: 20181120
  2. METOLAZONE. [Suspect]
     Active Substance: METOLAZONE
     Indication: WEIGHT INCREASED
     Dosage: 3 MG, QD
     Route: 048
     Dates: start: 20190319, end: 20190324
  3. METOLAZONE. [Suspect]
     Active Substance: METOLAZONE
     Indication: DYSPNOEA
  4. ZAROXOLYN [Suspect]
     Active Substance: METOLAZONE
     Indication: WEIGHT INCREASED
     Dosage: 3 MG, UNK
     Route: 048
     Dates: start: 20190319, end: 20190324
  5. BLINDED NO TREATMENT RECEIVED [Suspect]
     Active Substance: INVESTIGATIONAL PRODUCT
     Indication: CARDIAC FAILURE
     Dosage: CODE NOT BROKEN
     Route: 048
     Dates: start: 20181120
  6. TORSEMIDE. [Concomitant]
     Active Substance: TORSEMIDE
     Route: 048
     Dates: start: 20181226, end: 20190325
  7. BLINDED ENALAPRIL [Suspect]
     Active Substance: ENALAPRIL
     Indication: CARDIAC FAILURE
     Dosage: CODE NOT BROKEN
     Route: 048
     Dates: start: 20181120
  8. DIOVAN [Suspect]
     Active Substance: VALSARTAN
     Indication: CARDIAC FAILURE
     Dosage: CODE NOT BROKEN
     Route: 048
     Dates: start: 20181120
  9. DEMADEX [Suspect]
     Active Substance: TORSEMIDE
     Indication: DIURETIC THERAPY
     Dosage: 80 MG, QD
     Route: 048
     Dates: start: 20181226, end: 20190325

REACTIONS (1)
  - Acute kidney injury [Recovered/Resolved]

NARRATIVE: CASE EVENT DATE: 20190325
